FAERS Safety Report 19202044 (Version 1)
Quarter: 2021Q2

REPORT INFORMATION
  Report Type: Report from Study
  Country: MX (occurrence: MX)
  Receive Date: 20210502
  Receipt Date: 20210502
  Transmission Date: 20210717
  Serious: Yes (Other)
  Sender: FDA-Public Use
  Company Number: NVSC2021MX096594

PATIENT
  Sex: Male
  Weight: 50 kg

DRUGS (2)
  1. TRILEPTAL [Suspect]
     Active Substance: OXCARBAZEPINE
     Indication: EPILEPSY
     Dosage: ? (600MG) QD
     Route: 048
     Dates: start: 200701
  2. TRILEPTAL [Suspect]
     Active Substance: OXCARBAZEPINE
     Dosage: 1 DF (600 MG), Q12H
     Route: 048

REACTIONS (2)
  - Epilepsy [Recovering/Resolving]
  - Prescribed underdose [Unknown]
